FAERS Safety Report 4640495-1 (Version None)
Quarter: 2005Q2

REPORT INFORMATION
  Report Type: 
  Country: None (occurrence: None)
  Receive Date: 20050419
  Receipt Date: 20050407
  Transmission Date: 20051028
  Serious: Yes (Death, Hospitalization)
  Sender: FDA-Public Use
  Company Number: US-2005-003084

PATIENT
  Sex: 0

DRUGS (2)
  1. FLUDARA [Suspect]
     Indication: CHRONIC LYMPHOCYTIC LEUKAEMIA
     Dates: start: 20050101
  2. CORTICOSTEROIDS [Concomitant]

REACTIONS (3)
  - DRUG TOXICITY [None]
  - PULMONARY TOXICITY [None]
  - RESPIRATORY DISORDER [None]
